FAERS Safety Report 6751115-4 (Version None)
Quarter: 2010Q2

REPORT INFORMATION
  Report Type: 
  Country: None (occurrence: None)
  Receive Date: 20100602
  Receipt Date: 20100526
  Transmission Date: 20101027
  Serious: Yes (Other)
  Sender: FDA-Public Use
  Company Number: US-ASTRAZENECA-2010SE24261

PATIENT
  Age: 72 Year
  Sex: Male

DRUGS (1)
  1. TENORETIC 100 [Suspect]
     Route: 048

REACTIONS (1)
  - KNEE ARTHROPLASTY [None]
